FAERS Safety Report 4348454-3 (Version None)
Quarter: 2004Q2

REPORT INFORMATION
  Report Type: 
  Country: None (occurrence: None)
  Receive Date: 20040423
  Receipt Date: 20040415
  Transmission Date: 20050107
  Serious: Yes (Other)
  Sender: FDA-Public Use
  Company Number: 2004194694US

PATIENT
  Sex: Female
  Weight: 75.7 kg

DRUGS (3)
  1. ALDACTONE [Suspect]
     Indication: HYPOTRICHOSIS
     Dosage: 100 MG, DAILY
     Dates: start: 20020101, end: 20040115
  2. SYNTHROID [Concomitant]
  3. CYTOMEL [Concomitant]

REACTIONS (8)
  - ACNE [None]
  - ALOPECIA [None]
  - BREAST DISCHARGE [None]
  - BREAST ENGORGEMENT [None]
  - COMPLICATIONS OF MATERNAL EXPOSURE TO THERAPEUTIC DRUGS [None]
  - ECTOPIC PREGNANCY [None]
  - ECZEMA [None]
  - FATIGUE [None]
